FAERS Safety Report 6049462-7 (Version None)
Quarter: 2009Q1

REPORT INFORMATION
  Report Type: 
  Country: None (occurrence: None)
  Receive Date: 20090116
  Receipt Date: 20090113
  Transmission Date: 20090719
  Serious: No
  Sender: FDA-Public Use
  Company Number: 20085962

PATIENT
  Age: 29 Year
  Sex: Male

DRUGS (1)
  1. BACLOFEN [Suspect]
     Indication: MUSCLE SPASTICITY
     Dosage: 50-100 MCG, DAILY, INTRATHECAL
     Route: 037

REACTIONS (3)
  - DEVICE BREAKAGE [None]
  - INTRACRANIAL HYPOTENSION [None]
  - SEROMA [None]
